FAERS Safety Report 20150024 (Version 2)
Quarter: 2021Q4

REPORT INFORMATION
  Report Type: Spontaneous
  Country: MY (occurrence: MY)
  Receive Date: 20211206
  Receipt Date: 20211213
  Transmission Date: 20220303
  Serious: Yes (Hospitalization, Other)
  Sender: FDA-Public Use
  Company Number: MY-CIPLA (EU) LIMITED-2021MY07806

PATIENT

DRUGS (7)
  1. ALBUTEROL [Suspect]
     Active Substance: ALBUTEROL
     Indication: Asthma
     Dosage: UNK, PRIOR TO CURRENT PRESENTATION
     Route: 055
  2. ALBUTEROL [Suspect]
     Active Substance: ALBUTEROL
     Dosage: UNK, 5 MG, FOLLOWED BY ANOTHER 5 MG NEBULISED
     Route: 055
  3. ALBUTEROL [Suspect]
     Active Substance: ALBUTEROL
     Dosage: UNK, 5 MG, SELF-ADMINISTERED CONTINUOUS DOSES OF INHALED SALBUTAMOL
     Route: 055
  4. ALBUTEROL [Suspect]
     Active Substance: ALBUTEROL
     Dosage: UNK, 200 MICROGRAM, 6 HOURS, METERED-DOSE INHALER (MDI) SALBUTAMOL 200 ?G HOURLY
     Route: 055
  5. IPRATROPIUM [Concomitant]
     Active Substance: IPRATROPIUM
     Indication: Asthma
     Dosage: UNK, 0.25 MG
     Route: 055
  6. HYDROCORTISONE [Concomitant]
     Active Substance: HYDROCORTISONE
     Indication: Asthma
     Dosage: UNK, 200 MG
     Route: 042
  7. SODIUM CHLORIDE [Concomitant]
     Active Substance: SODIUM CHLORIDE
     Indication: Blood lactic acid increased
     Dosage: UNK, 500 ML
     Route: 042

REACTIONS (5)
  - Lactic acidosis [Recovering/Resolving]
  - Sepsis [Recovered/Resolved]
  - Self-medication [Recovering/Resolving]
  - Metabolic acidosis [Recovering/Resolving]
  - Condition aggravated [Recovering/Resolving]
